FAERS Safety Report 4404197-9 (Version None)
Quarter: 2004Q3

REPORT INFORMATION
  Report Type: 
  Country: None (occurrence: None)
  Receive Date: 20040719
  Receipt Date: 20040713
  Transmission Date: 20050211
  Serious: Yes (Death)
  Sender: FDA-Public Use
  Company Number: MK200407-0076-1

PATIENT
  Age: 47 Year
  Sex: Male

DRUGS (5)
  1. ANAFRANIL [Suspect]
  2. BROTIZOLAM [Concomitant]
  3. ETHANOL [Concomitant]
  4. ETHYL LOFLAZEPATE [Concomitant]
  5. FLUNITRAZEPAM [Concomitant]

REACTIONS (5)
  - ALCOHOL USE [None]
  - CARDIOPULMONARY FAILURE [None]
  - COMPLETED SUICIDE [None]
  - MURDER [None]
  - SHOCK [None]
